FAERS Safety Report 10078409 (Version 1)
Quarter: 2014Q2

REPORT INFORMATION
  Report Type: Spontaneous
  Country: US (occurrence: None)
  Receive Date: 20140401
  Receipt Date: 20140401
  Transmission Date: 20141212
  Serious: No
  Sender: FDA-Public Use
  Company Number: HA12-171-AE

PATIENT
  Age: 56 Year
  Sex: Female
  Weight: 44.45 kg

DRUGS (1)
  1. GABAPENTIN [Suspect]
     Indication: CARPAL TUNNEL SYNDROME
     Dosage: 1 CAPSULE A DAY, ORAL
     Route: 048
     Dates: start: 201204

REACTIONS (8)
  - Fatigue [None]
  - White blood cell count increased [None]
  - Somnolence [None]
  - Terminal insomnia [None]
  - Insomnia [None]
  - Pyrexia [None]
  - Paraesthesia [None]
  - Stress [None]
